FAERS Safety Report 12579647 (Version 1)
Quarter: 2016Q3

REPORT INFORMATION
  Report Type: Spontaneous
  Country: US (occurrence: US)
  Receive Date: 20160721
  Receipt Date: 20160721
  Transmission Date: 20161109
  Serious: Yes (Death)
  Sender: FDA-Public Use
  Company Number: US-ELI_LILLY_AND_COMPANY-US201607007671

PATIENT

DRUGS (5)
  1. EPIRUBICIN [Suspect]
     Active Substance: EPIRUBICIN
     Indication: OESOPHAGEAL CANCER METASTATIC
     Dosage: 50 MG/M2, CYCLICAL
     Route: 042
  2. CETUXIMAB [Suspect]
     Active Substance: CETUXIMAB
     Indication: OESOPHAGEAL CANCER METASTATIC
     Dosage: 400 MG/M2, SINGLE
     Route: 042
  3. FLUOROURACIL. [Suspect]
     Active Substance: FLUOROURACIL
     Indication: OESOPHAGEAL CANCER METASTATIC
     Dosage: 200 MG/M2, QD
     Route: 042
  4. CETUXIMAB [Suspect]
     Active Substance: CETUXIMAB
     Dosage: 250 MG/M2, WEEKLY (1/W)
     Route: 042
  5. CISPLATIN. [Suspect]
     Active Substance: CISPLATIN
     Indication: OESOPHAGEAL CANCER METASTATIC
     Dosage: 60 MG/M2, UNKNOWN
     Route: 042

REACTIONS (1)
  - Sudden death [Fatal]
